FAERS Safety Report 22175658 (Version 1)
Quarter: 2023Q2

REPORT INFORMATION
  Report Type: Spontaneous
  Country: CH (occurrence: CH)
  Receive Date: 20230405
  Receipt Date: 20230405
  Transmission Date: 20230721
  Serious: Yes (Hospitalization)
  Sender: FDA-Public Use
  Company Number: CH-ViiV Healthcare Limited-69157

PATIENT

DRUGS (1)
  1. DOVATO [Suspect]
     Active Substance: DOLUTEGRAVIR SODIUM\LAMIVUDINE
     Indication: Product used for unknown indication
     Dosage: UNK

REACTIONS (3)
  - Hospitalisation [Unknown]
  - Circumstance or information capable of leading to medication error [Unknown]
  - Incorrect route of product administration [Unknown]
